FAERS Safety Report 5201070-3 (Version None)
Quarter: 2007Q1

REPORT INFORMATION
  Report Type: 
  Country: None (occurrence: None)
  Receive Date: 20070108
  Receipt Date: 20070103
  Transmission Date: 20070707
  Serious: Yes (Hospitalization)
  Sender: FDA-Public Use
  Company Number: FR-ROCHE-476925

PATIENT
  Age: 78 Year
  Sex: Female

DRUGS (9)
  1. CAPECITABINE [Suspect]
     Indication: BREAST CANCER
     Dosage: TAKEN ON DAYS 1-14 EVERY 3 WEEKS.
     Route: 048
     Dates: start: 20060628, end: 20060630
  2. CAPECITABINE [Suspect]
     Dosage: TAKEN ON DAYS 1-14 EVERY 3 WEEKS.
     Route: 048
     Dates: start: 20060706
  3. IXABEPILONE [Suspect]
     Indication: BREAST CANCER
     Dosage: TAKEN ON DAY 1 EVERY 3 WEEKS.
     Route: 042
     Dates: start: 20060628, end: 20060628
  4. TELMISARTAN [Concomitant]
     Dates: start: 20050615
  5. LYSINE ACETYLSALICYLATE [Concomitant]
     Dates: start: 20050615
  6. ATORVASTATIN CALCIUM [Concomitant]
  7. GANCICLOVIR [Concomitant]
     Dates: start: 20060522
  8. VITAMIN B-12 [Concomitant]
     Dates: start: 20060621
  9. LATANOPROST [Concomitant]
     Dates: start: 20060621

REACTIONS (2)
  - ARTHRALGIA [None]
  - HYPOTHERMIA [None]
